FAERS Safety Report 5876857-4 (Version None)
Quarter: 2008Q3

REPORT INFORMATION
  Report Type: 
  Country: None (occurrence: None)
  Receive Date: 20080908
  Receipt Date: 20080822
  Transmission Date: 20090109
  Serious: Yes (Hospitalization, Other)
  Sender: FDA-Public Use
  Company Number: PAR_02318_2008

PATIENT
  Sex: Female
  Weight: 4 kg

DRUGS (10)
  1. CAPTOPRIL [Suspect]
     Indication: DRUG USE FOR UNKNOWN INDICATION
     Dosage: 1.5 MG TID ORAL
     Route: 048
     Dates: start: 20080101, end: 20080701
  2. CAPTOPRIL [Suspect]
     Indication: DRUG USE FOR UNKNOWN INDICATION
     Dosage: 1.5 MG TID ORAL
     Route: 048
     Dates: start: 20080701
  3. LASIX [Suspect]
     Indication: DRUG USE FOR UNKNOWN INDICATION
     Dosage: 3 MG QD ORAL
     Route: 048
     Dates: start: 20080101, end: 20080718
  4. LASIX [Suspect]
     Indication: DRUG USE FOR UNKNOWN INDICATION
     Dosage: 3 MG QD ORAL
     Route: 048
     Dates: start: 20080718
  5. ZANTAC [Suspect]
     Indication: DRUG USE FOR UNKNOWN INDICATION
     Dosage: 3 MG BID ORAL
     Route: 048
     Dates: start: 20080101, end: 20080701
  6. ZANTAC [Suspect]
     Indication: DRUG USE FOR UNKNOWN INDICATION
     Dosage: 3 MG BID ORAL
     Route: 048
     Dates: start: 20080701
  7. ASPIRIN [Suspect]
     Indication: DRUG USE FOR UNKNOWN INDICATION
     Dosage: 81 MG QD ORAL
     Route: 048
     Dates: start: 20080101, end: 20080701
  8. ASPIRIN [Suspect]
     Indication: DRUG USE FOR UNKNOWN INDICATION
     Dosage: 81 MG QD ORAL
     Route: 048
     Dates: start: 20080701
  9. PLAVIX [Suspect]
     Indication: DRUG USE FOR UNKNOWN INDICATION
     Dosage: DF
     Dates: start: 20080101, end: 20080701
  10. PLAVIX [Suspect]
     Indication: DRUG USE FOR UNKNOWN INDICATION
     Dosage: DF
     Dates: start: 20080701

REACTIONS (22)
  - ASPIRATION [None]
  - ATELECTASIS [None]
  - BLOOD GLUCOSE INCREASED [None]
  - BLOOD PH DECREASED [None]
  - BLOOD POTASSIUM INCREASED [None]
  - BLOOD PRESSURE DECREASED [None]
  - BLOOD SODIUM DECREASED [None]
  - BODY TEMPERATURE DECREASED [None]
  - CARDIAC FUNCTION TEST ABNORMAL [None]
  - CARDIAC MURMUR [None]
  - CYANOSIS [None]
  - GASTROOESOPHAGEAL REFLUX DISEASE [None]
  - HAEMODYNAMIC INSTABILITY [None]
  - HEART RATE INCREASED [None]
  - HYPOTONIA [None]
  - INFECTION [None]
  - LIVEDO RETICULARIS [None]
  - PCO2 DECREASED [None]
  - PCO2 INCREASED [None]
  - RESPIRATORY ARREST [None]
  - VOMITING [None]
  - WHITE BLOOD CELL COUNT INCREASED [None]
